FAERS Safety Report 5305272-7 (Version None)
Quarter: 2007Q2

REPORT INFORMATION
  Report Type: 
  Country: None (occurrence: None)
  Receive Date: 20070424
  Receipt Date: 20070413
  Transmission Date: 20071010
  Serious: Yes (Hospitalization, Other)
  Sender: FDA-Public Use
  Company Number: GB-JNJFOC-20070403048

PATIENT
  Sex: Female
  Weight: 50 kg

DRUGS (14)
  1. REMICADE [Suspect]
     Indication: RHEUMATOID ARTHRITIS
     Route: 042
  2. METHOTREXATE [Concomitant]
  3. LEFLUNOMIDE [Concomitant]
  4. PREDNISOLONE [Concomitant]
  5. ADCAL D3 [Concomitant]
  6. AMITRIPTYLINE HCL [Concomitant]
  7. CO-PROXAMOL [Concomitant]
  8. DIGOXIN [Concomitant]
  9. DIHYDROCODEINE BITARTRATE INJ [Concomitant]
  10. FOLIC ACID [Concomitant]
  11. LANSOPRAZOLE [Concomitant]
  12. NAPROXEN [Concomitant]
  13. RISEDRONATE SODIUM [Concomitant]
  14. WARFARIN [Concomitant]

REACTIONS (2)
  - HAEMOGLOBIN DECREASED [None]
  - HYPERGAMMAGLOBULINAEMIA BENIGN MONOCLONAL [None]
